FAERS Safety Report 8253615-7 (Version None)
Quarter: 2012Q2

REPORT INFORMATION
  Report Type: 
  Country: None (occurrence: None)
  Receive Date: 20120402
  Receipt Date: 20120308
  Transmission Date: 20120825
  Serious: No
  Sender: FDA-Public Use
  Company Number: US-AMGEN-USASP2012015321

PATIENT
  Age: 56 Year
  Sex: Female

DRUGS (2)
  1. ENBREL [Suspect]
     Indication: ANKYLOSING SPONDYLITIS
     Dosage: 50 MG, QWK
     Dates: start: 20090608
  2. HUMIRA [Concomitant]

REACTIONS (5)
  - NEURALGIA [None]
  - BACK PAIN [None]
  - HERPES ZOSTER [None]
  - BONE PAIN [None]
  - FINGER DEFORMITY [None]
